FAERS Safety Report 4622590-6 (Version None)
Quarter: 2005Q1

REPORT INFORMATION
  Report Type: 
  Country: None (occurrence: None)
  Receive Date: 20050325
  Receipt Date: 20050325
  Transmission Date: 20050727
  Serious: Yes (Other)
  Sender: FDA-Public Use
  Company Number: None

PATIENT
  Age: 35 Year
  Sex: Female
  Weight: 69.8539 kg

DRUGS (2)
  1. DEPO-PROVERA [Suspect]
     Indication: CONTRACEPTION
     Dosage: 150MG  EVERY 3 MTHS  INTRAMUSCU
     Route: 030
     Dates: start: 20040120, end: 20040716
  2. MEDROXYPROGESTERONE [Suspect]
     Indication: CONTRACEPTION
     Dosage: 150MG  EVERY 3 MTHS  INTRAMUSCU
     Route: 030
     Dates: start: 20041015, end: 20050116

REACTIONS (7)
  - ABDOMINAL DISTENSION [None]
  - DEPRESSED MOOD [None]
  - GASTRIC DISORDER [None]
  - HEADACHE [None]
  - IMMUNE SYSTEM DISORDER [None]
  - MYALGIA [None]
  - WEIGHT INCREASED [None]
